FAERS Safety Report 5430727-4 (Version None)
Quarter: 2007Q3

REPORT INFORMATION
  Report Type: 
  Country: None (occurrence: None)
  Receive Date: 20070830
  Receipt Date: 20061103
  Transmission Date: 20080115
  Serious: No
  Sender: FDA-Public Use
  Company Number: A0626143A

PATIENT
  Age: 60 Year
  Sex: Female

DRUGS (6)
  1. WELLBUTRIN XL [Suspect]
     Indication: DEPRESSION
     Dosage: 300MG PER DAY
     Route: 048
     Dates: start: 20061027
  2. DIGOXIN [Concomitant]
  3. UNKNOWN MEDICATION [Concomitant]
  4. ATENOLOL [Concomitant]
  5. LIPITOR [Concomitant]
  6. OMEGA 3 [Concomitant]

REACTIONS (1)
  - DYSGEUSIA [None]
